FAERS Safety Report 22063388 (Version 1)
Quarter: 2023Q1

REPORT INFORMATION
  Report Type: Spontaneous
  Country: FR (occurrence: FR)
  Receive Date: 20230306
  Receipt Date: 20230306
  Transmission Date: 20230418
  Serious: Yes (Hospitalization, Other)
  Sender: FDA-Public Use
  Company Number: None

PATIENT
  Sex: Male

DRUGS (1)
  1. DRONABINOL [Suspect]
     Active Substance: DRONABINOL
     Indication: Neuralgia
     Dosage: 30 DOSAGE FORM, ONCE (1 TOTAL)
     Route: 048

REACTIONS (3)
  - Poisoning deliberate [Recovered/Resolved]
  - Psychomotor skills impaired [Recovered/Resolved]
  - Vomiting [Recovered/Resolved]
